FAERS Safety Report 18886195 (Version 1)
Quarter: 2021Q1

REPORT INFORMATION
  Report Type: Spontaneous
  Country: US (occurrence: US)
  Receive Date: 20210212
  Receipt Date: 20210212
  Transmission Date: 20210420
  Serious: No
  Sender: FDA-Public Use
  Company Number: US-BIOVITRUM-2021US1326

PATIENT
  Age: 9 Month
  Sex: Female
  Weight: 8 kg

DRUGS (6)
  1. SODIUM CITRATE. [Concomitant]
     Active Substance: SODIUM CITRATE
     Dosage: 4 % (3 ML) SYRINGE
  2. SYNAGIS [Suspect]
     Active Substance: PALIVIZUMAB
     Indication: PREMATURE BABY
     Route: 030
     Dates: start: 20201214
  3. ACETAMINOPHEN. [Concomitant]
     Active Substance: ACETAMINOPHEN
     Dosage: 160 MG/5ML ELIXIR
  4. KATERZIA [Concomitant]
     Active Substance: AMLODIPINE BENZOATE
     Dosage: 1 MG/ML ORAL SUSP
  5. POLY?VI?SOL WITH IRON [Concomitant]
     Active Substance: IRON\VITAMINS
  6. IBUPROFEN. [Concomitant]
     Active Substance: IBUPROFEN
     Dosage: 100 MG/5ML ORAL SUSP

REACTIONS (2)
  - Irritability [Unknown]
  - Insomnia [Unknown]

NARRATIVE: CASE EVENT DATE: 202012
